FAERS Safety Report 5352719-6 (Version None)
Quarter: 2007Q2

REPORT INFORMATION
  Report Type: 
  Country: None (occurrence: None)
  Receive Date: 20070611
  Receipt Date: 20070608
  Transmission Date: 20071010
  Serious: Yes (Other)
  Sender: FDA-Public Use
  Company Number: US-JNJFOC-20070303536

PATIENT
  Sex: Male
  Weight: 33.5 kg

DRUGS (3)
  1. TOPAMAX [Suspect]
     Indication: CONVULSION
     Route: 048
  2. TRILEPTAL [Concomitant]
     Route: 048
  3. TRILEPTAL [Concomitant]
     Indication: EPILEPSY
     Route: 048

REACTIONS (3)
  - BLINDNESS TRANSIENT [None]
  - EYE PAIN [None]
  - VISION BLURRED [None]
